FAERS Safety Report 9015734 (Version 1)
Quarter: 2013Q1

REPORT INFORMATION
  Report Type: Spontaneous
  Country: GB (occurrence: None)
  Receive Date: 20130102
  Receipt Date: 20130102
  Transmission Date: 20140127
  Serious: Yes (Hospitalization)
  Sender: FDA-Public Use
  Company Number: 1538254

PATIENT
  Age: 51 Year
  Sex: Female
  Weight: 69 kg

DRUGS (10)
  1. CARBOPLATIN [Suspect]
     Indication: BREAST CANCER
     Route: 042
     Dates: start: 20121107
  2. DOCETAXEL [Suspect]
     Indication: BREAST CANCER
     Route: 042
     Dates: start: 20121107
  3. TRASTUZUMAB [Suspect]
     Indication: BREAST CANCER
     Route: 042
     Dates: start: 20121107
  4. INVESTIGATIONAL DRUG [Concomitant]
  5. PICOPREP [Concomitant]
  6. VENLAFAXINE HYDROCHLORIDE [Concomitant]
  7. TEMAZEPAM [Concomitant]
  8. PARACETAMOL [Concomitant]
  9. ENDONE [Concomitant]
  10. ZOFRAN [Concomitant]

REACTIONS (2)
  - Constipation [None]
  - Neutropenic colitis [None]
